FAERS Safety Report 23663773 (Version 3)
Quarter: 2025Q2

REPORT INFORMATION
  Report Type: Spontaneous
  Country: US (occurrence: US)
  Receive Date: 20240322
  Receipt Date: 20250516
  Transmission Date: 20250717
  Serious: Yes (Other)
  Sender: UPSHER SMITH LABORATORIES
  Company Number: US-UPSHER-SMITH LABORATORIES, LLC-2023USL00323

PATIENT
  Sex: Female
  Weight: 71.655 kg

DRUGS (1)
  1. ISOTRETINOIN [Suspect]
     Active Substance: ISOTRETINOIN
     Indication: Acne
     Route: 048
     Dates: start: 20221220, end: 20230120

REACTIONS (2)
  - Abortion induced [Unknown]
  - Depression [Unknown]

NARRATIVE: CASE EVENT DATE: 20230101
